FAERS Safety Report 13409134 (Version 1)
Quarter: 2017Q2

REPORT INFORMATION
  Report Type: Spontaneous
  Country: US (occurrence: US)
  Receive Date: 20170405
  Receipt Date: 20170405
  Transmission Date: 20170830
  Serious: Yes (Life-Threatening, Disabling)
  Sender: FDA-Public Use
  Company Number: None

PATIENT
  Age: 40 Year
  Sex: Female
  Weight: 68.85 kg

DRUGS (5)
  1. VITAMIN D [Concomitant]
     Active Substance: CHOLECALCIFEROL
  2. VITAMIN B [Concomitant]
     Active Substance: VITAMIN B
  3. CORTICOSTEROID [Suspect]
     Active Substance: CORTICOSTEROID NOS
     Indication: PRODUCT USED FOR UNKNOWN INDICATION
     Route: 030
     Dates: start: 20160413, end: 20160417
  4. PREDNISONE. [Suspect]
     Active Substance: PREDNISONE
  5. GLUCOSAMINE [Concomitant]
     Active Substance: GLUCOSAMINE

REACTIONS (14)
  - Fear [None]
  - Palpitations [None]
  - Tremor [None]
  - Insomnia [None]
  - Anxiety [None]
  - Paranoia [None]
  - Panic attack [None]
  - Hallucination [None]
  - Depression [None]
  - Suicidal ideation [None]
  - Tinnitus [None]
  - Blood potassium decreased [None]
  - Hypophagia [None]
  - Dehydration [None]

NARRATIVE: CASE EVENT DATE: 20160413
